FAERS Safety Report 6709179-X (Version None)
Quarter: 2010Q2

REPORT INFORMATION
  Report Type: 
  Country: None (occurrence: None)
  Receive Date: 20100504
  Receipt Date: 20100427
  Transmission Date: 20101027
  Serious: Yes (Life-Threatening)
  Sender: FDA-Public Use
  Company Number: GR-TYCO HEALTHCARE/MALLINCKRODT-T201001110

PATIENT
  Age: 66 Year
  Sex: Male
  Weight: 105 kg

DRUGS (3)
  1. OPTIRAY 350 [Suspect]
     Indication: COMPUTERISED TOMOGRAM
     Dosage: 80 ML, SINGLE
     Route: 042
     Dates: start: 20090603, end: 20090603
  2. LAPRAZOL [Concomitant]
  3. IRBESARTAN [Concomitant]

REACTIONS (3)
  - DYSPHAGIA [None]
  - DYSPNOEA [None]
  - LOCALISED OEDEMA [None]
